FAERS Safety Report 7790634-9 (Version None)
Quarter: 2011Q3

REPORT INFORMATION
  Report Type: 
  Country: None (occurrence: None)
  Receive Date: 20110930
  Receipt Date: 20110926
  Transmission Date: 20111222
  Serious: Yes (Hospitalization)
  Sender: FDA-Public Use
  Company Number: JP-ABBOTT-11P-087-0852151-00

PATIENT
  Sex: Male
  Weight: 73 kg

DRUGS (9)
  1. HUMIRA [Suspect]
     Indication: CROHN'S DISEASE
     Route: 058
     Dates: start: 20101211, end: 20101211
  2. HUMIRA [Suspect]
     Dates: start: 20110108
  3. POLYCARBOPHIL CALCIUM [Concomitant]
     Indication: CROHN'S DISEASE
     Route: 048
  4. LACTOMIN [Concomitant]
     Indication: CROHN'S DISEASE
     Dosage: 3GM DAILY
     Route: 048
  5. ALBUMIN TANNATE [Concomitant]
     Indication: CROHN'S DISEASE
     Route: 048
  6. MESALAMINE [Concomitant]
     Indication: CROHN'S DISEASE
     Route: 048
  7. POLAPREZINC [Concomitant]
     Indication: CROHN'S DISEASE
     Route: 048
  8. FAMOTIDINE [Concomitant]
     Indication: CROHN'S DISEASE
     Route: 048
  9. HUMIRA [Suspect]
     Dates: start: 20101225, end: 20101225

REACTIONS (3)
  - CROHN'S DISEASE [None]
  - DUODENAL ULCER HAEMORRHAGE [None]
  - MELAENA [None]
